FAERS Safety Report 18046173 (Version 15)
Quarter: 2025Q3

REPORT INFORMATION
  Report Type: Report from Study
  Country: US (occurrence: US)
  Receive Date: 20200721
  Receipt Date: 20250909
  Transmission Date: 20251020
  Serious: Yes (Other)
  Sender: TAKEDA
  Company Number: US-SHIRE-US202023228

PATIENT
  Age: 37 Year
  Sex: Female
  Weight: 66 kg

DRUGS (57)
  1. HUMAN C1-ESTERASE INHIBITOR [Suspect]
     Active Substance: HUMAN C1-ESTERASE INHIBITOR
     Indication: Immune system disorder
     Dosage: 500 INTERNATIONAL UNIT, 1/WEEK
     Dates: start: 20160526
  2. HUMAN C1-ESTERASE INHIBITOR [Suspect]
     Active Substance: HUMAN C1-ESTERASE INHIBITOR
     Indication: Immunodeficiency common variable
     Dosage: 500 INTERNATIONAL UNIT, 2/WEEK
     Dates: start: 20160531
  3. HUMAN C1-ESTERASE INHIBITOR [Suspect]
     Active Substance: HUMAN C1-ESTERASE INHIBITOR
  4. GAMMAGARD LIQUID [Suspect]
     Active Substance: HUMAN IMMUNOGLOBULIN G
     Indication: Immune system disorder
     Dosage: 40 GRAM, Q3WEEKS
     Dates: start: 20150206
  5. GAMMAGARD LIQUID [Suspect]
     Active Substance: HUMAN IMMUNOGLOBULIN G
     Indication: Immunodeficiency common variable
     Dosage: 40 GRAM, Q3WEEKS
     Dates: start: 20190731
  6. GAMMAGARD LIQUID [Suspect]
     Active Substance: HUMAN IMMUNOGLOBULIN G
     Dosage: 60 GRAM, Q3WEEKS
  7. GAMMAGARD LIQUID [Suspect]
     Active Substance: HUMAN IMMUNOGLOBULIN G
     Dosage: 40 GRAM, Q3WEEKS
     Dates: start: 20190802
  8. GAMMAGARD LIQUID [Suspect]
     Active Substance: HUMAN IMMUNOGLOBULIN G
     Dosage: 45 GRAM, Q2WEEKS
  9. HAEGARDA [Suspect]
     Active Substance: HUMAN C1-ESTERASE INHIBITOR
     Indication: Product used for unknown indication
  10. CLONAZEPAM [Concomitant]
     Active Substance: CLONAZEPAM
  11. ACETAMINOPHEN [Concomitant]
     Active Substance: ACETAMINOPHEN
  12. DIPHENHYDRAMINE [Concomitant]
     Active Substance: DIPHENHYDRAMINE
  13. HEPARIN [Concomitant]
     Active Substance: HEPARIN SODIUM
  14. SODIUM CHLORIDE [Concomitant]
     Active Substance: SODIUM CHLORIDE
  15. SODIUM CHLORIDE [Concomitant]
     Active Substance: SODIUM CHLORIDE
  16. EPINEPHRINE [Concomitant]
     Active Substance: EPINEPHRINE
  17. Lmx [Concomitant]
  18. ZYRTEC [Concomitant]
     Active Substance: CETIRIZINE HYDROCHLORIDE
  19. STERILE WATER [Concomitant]
     Active Substance: WATER
  20. METHYLCOBALAMIN [Concomitant]
     Active Substance: METHYLCOBALAMIN
  21. CHOLESTYRAMINE [Concomitant]
     Active Substance: CHOLESTYRAMINE
  22. NAPROXEN SODIUM [Concomitant]
     Active Substance: NAPROXEN SODIUM
  23. NORGESTIMATE AND ETHINYL ESTRADIOL [Concomitant]
     Active Substance: ETHINYL ESTRADIOL\NORGESTIMATE
  24. CLONIDINE [Concomitant]
     Active Substance: CLONIDINE
  25. TRINTELLIX [Concomitant]
     Active Substance: VORTIOXETINE HYDROBROMIDE
  26. Nac [Concomitant]
  27. VITAMIN D3 [Concomitant]
     Active Substance: CHOLECALCIFEROL
  28. CITALOPRAM [Concomitant]
     Active Substance: CITALOPRAM
  29. LYRICA [Concomitant]
     Active Substance: PREGABALIN
  30. MINOCYCLINE HYDROCHLORIDE [Concomitant]
     Active Substance: MINOCYCLINE HYDROCHLORIDE
  31. CLONIDINE HYDROCHLORIDE [Concomitant]
     Active Substance: CLONIDINE HYDROCHLORIDE
  32. CITALOPRAM HYDROBROMIDE [Concomitant]
     Active Substance: CITALOPRAM HYDROBROMIDE
  33. CYTOMEL [Concomitant]
     Active Substance: LIOTHYRONINE SODIUM
  34. LIDOCAINE [Concomitant]
     Active Substance: LIDOCAINE
  35. MINOCYCLINE [Concomitant]
     Active Substance: MINOCYCLINE HYDROCHLORIDE
     Indication: Arthropod bite
  36. MINOCYCLINE [Concomitant]
     Active Substance: MINOCYCLINE HYDROCHLORIDE
     Indication: Lyme disease
  37. CETIRIZINE HYDROCHLORIDE [Concomitant]
     Active Substance: CETIRIZINE HYDROCHLORIDE
  38. DOXYCYCLINE HYCLATE [Concomitant]
     Active Substance: DOXYCYCLINE HYCLATE
  39. ORLADEYO [Concomitant]
     Active Substance: BEROTRALSTAT HYDROCHLORIDE
  40. XIFAXAN [Concomitant]
     Active Substance: RIFAXIMIN
  41. QUVIVIQ [Concomitant]
     Active Substance: DARIDOREXANT
  42. METFORMIN HYDROCHLORIDE [Concomitant]
     Active Substance: METFORMIN HYDROCHLORIDE
  43. MODERNA COVID-19 VACCINE [Concomitant]
     Active Substance: ELASOMERAN
  44. AMOXICILLIN\CLAVULANIC ACID [Concomitant]
     Active Substance: AMOXICILLIN\CLAVULANIC ACID
  45. DIPHENHYDRAMINE HYDROCHLORIDE [Concomitant]
     Active Substance: DIPHENHYDRAMINE HYDROCHLORIDE
  46. NASACORT [Concomitant]
     Active Substance: TRIAMCINOLONE ACETONIDE
  47. MOUNJARO [Concomitant]
     Active Substance: TIRZEPATIDE
  48. LEUCOVORIN CALCIUM [Concomitant]
     Active Substance: LEUCOVORIN CALCIUM
  49. LEVOTHYROXINE [Concomitant]
     Active Substance: LEVOTHYROXINE
  50. BERINERT [Concomitant]
     Active Substance: HUMAN C1-ESTERASE INHIBITOR
  51. MONTELUKAST SODIUM [Concomitant]
     Active Substance: MONTELUKAST SODIUM
  52. IRON [Concomitant]
     Active Substance: IRON
  53. ARMOUR THYROID [Concomitant]
     Active Substance: THYROID, PORCINE
  54. FAMOTIDINE [Concomitant]
     Active Substance: FAMOTIDINE
  55. ATENOLOL [Concomitant]
     Active Substance: ATENOLOL
  56. ALLEGRA-D [Concomitant]
     Active Substance: FEXOFENADINE HYDROCHLORIDE\PSEUDOEPHEDRINE HYDROCHLORIDE
  57. TRINTELLIX [Concomitant]
     Active Substance: VORTIOXETINE HYDROBROMIDE

REACTIONS (12)
  - Lyme disease [Unknown]
  - Arthropod bite [Unknown]
  - Nasopharyngitis [Recovering/Resolving]
  - Pharyngitis streptococcal [Unknown]
  - Product dose omission issue [Unknown]
  - Injection site pruritus [Recovered/Resolved]
  - Rash [Recovered/Resolved]
  - Dizziness [Recovered/Resolved]
  - Injection site erythema [Recovered/Resolved]
  - Erythema [Recovered/Resolved]
  - Pruritus [Unknown]
  - Drug hypersensitivity [Unknown]

NARRATIVE: CASE EVENT DATE: 20200710
